FAERS Safety Report 11738603 (Version 1)
Quarter: 2015Q4

REPORT INFORMATION
  Report Type: Spontaneous
  Country: US (occurrence: US)
  Receive Date: 20151110
  Receipt Date: 20151110
  Transmission Date: 20160304
  Serious: No
  Sender: FDA-Public Use
  Company Number: US-ELI_LILLY_AND_COMPANY-US201202000127

PATIENT
  Age: 79 Year
  Sex: Female

DRUGS (3)
  1. FORTEO [Suspect]
     Active Substance: TERIPARATIDE
     Indication: OSTEOPOROSIS
     Dosage: 20 UG, QD
     Dates: start: 20120128
  2. FORTEO [Suspect]
     Active Substance: TERIPARATIDE
     Dosage: 20 UG, QD
  3. FORTEO [Suspect]
     Active Substance: TERIPARATIDE
     Dosage: 20 UG, QD

REACTIONS (11)
  - Pain [Unknown]
  - Mass [Unknown]
  - Asthenia [Unknown]
  - Joint swelling [Unknown]
  - Contusion [Unknown]
  - Patella fracture [Unknown]
  - Dyskinesia [Unknown]
  - Arthralgia [Unknown]
  - Fall [Unknown]
  - Gait disturbance [Unknown]
  - Rash [Unknown]

NARRATIVE: CASE EVENT DATE: 201201
